FAERS Safety Report 11329002 (Version 3)
Quarter: 2015Q4

REPORT INFORMATION
  Report Type: Report from Study
  Country: JP (occurrence: JP)
  Receive Date: 20150802
  Receipt Date: 20151222
  Transmission Date: 20160304
  Serious: Yes (Death, Other)
  Sender: FDA-Public Use
  Company Number: JP-TEVA-582620ISR

PATIENT
  Age: 61 Year
  Sex: Male

DRUGS (8)
  1. ONCOVIN [Concomitant]
     Active Substance: VINCRISTINE SULFATE
     Indication: LYMPHOMA
     Dosage: 2 MILLIGRAM DAILY;
     Route: 042
     Dates: start: 20141106
  2. ENDOXAN [Concomitant]
     Active Substance: CYCLOPHOSPHAMIDE
     Indication: STEM CELL TRANSPLANT
     Dosage: 300 MILLIGRAM DAILY;
     Route: 042
  3. FILGRASTIM BS INJ. ^NK^ (FILGRASTIM (GENETICAL RECOMBINATION)) [Suspect]
     Active Substance: FILGRASTIM
     Indication: NEUTROPENIA
     Dosage: DAILY DOSE: 450 MICROG/BODY
     Route: 042
     Dates: start: 20141203, end: 20150130
  4. BUSULFEX [Concomitant]
     Active Substance: BUSULFAN
     Indication: STEM CELL TRANSPLANT
     Dosage: 192 MILLIGRAM DAILY;
     Route: 042
     Dates: start: 20141122, end: 20141125
  5. UROMITEXAN [Concomitant]
     Active Substance: MESNA
     Indication: STEM CELL TRANSPLANT
     Dosage: 3600 MILLIGRAM DAILY;
     Route: 042
  6. METHOTREXATE [Concomitant]
     Active Substance: METHOTREXATE
     Indication: STEM CELL TRANSPLANT
     Dosage: 15 MILLIGRAM DAILY;
     Route: 042
     Dates: start: 20141125, end: 20141125
  7. FLUDARA [Concomitant]
     Active Substance: FLUDARABINE PHOSPHATE
     Indication: LYMPHOMA
     Dosage: 50 MILLIGRAM DAILY;
     Route: 042
     Dates: start: 20141121, end: 20141126
  8. CYLOCIDE [Concomitant]
     Active Substance: CYTARABINE
     Indication: STEM CELL TRANSPLANT
     Dosage: 40 MILLIGRAM DAILY;
     Route: 042
     Dates: start: 20141125, end: 20141125

REACTIONS (7)
  - Condition aggravated [Unknown]
  - Respiratory disorder [Unknown]
  - Back pain [Recovered/Resolved]
  - Circulatory collapse [Fatal]
  - Histiocytosis haematophagic [Unknown]
  - Transplant failure [Unknown]
  - Renal impairment [Unknown]

NARRATIVE: CASE EVENT DATE: 20141228
